FAERS Safety Report 7320870-7 (Version None)
Quarter: 2011Q1

REPORT INFORMATION
  Report Type: 
  Country: None (occurrence: None)
  Receive Date: 20110121
  Receipt Date: 20100524
  Transmission Date: 20110831
  Serious: Yes (Other)
  Sender: FDA-Public Use
  Company Number: SOLV00210003061

PATIENT
  Age: 55 Year
  Sex: Female

DRUGS (3)
  1. PROMETRIUM [Suspect]
     Indication: OESTROGEN REPLACEMENT THERAPY
     Dosage: 200MG DAILY FOR THE FIRST 12 DAYS OF THE MONTH
     Dates: end: 20070601
  2. PREMARIN [Suspect]
     Indication: OESTROGEN REPLACEMENT THERAPY
     Dates: end: 20070601
  3. CLIMARA [Suspect]
     Indication: OESTROGEN REPLACEMENT THERAPY
     Dosage: DAILY TRANSCUTANEOUS
     Dates: end: 20070601

REACTIONS (1)
  - BREAST CANCER IN SITU [None]
